FAERS Safety Report 5801852-0 (Version None)
Quarter: 2008Q3

REPORT INFORMATION
  Report Type: 
  Country: None (occurrence: None)
  Receive Date: 20080707
  Receipt Date: 20080627
  Transmission Date: 20090109
  Serious: Yes (Hospitalization, Disabling)
  Sender: FDA-Public Use
  Company Number: JP-ASTRAZENECA-2008AP04600

PATIENT
  Age: 19635 Day
  Sex: Male
  Weight: 87 kg

DRUGS (5)
  1. CRESTOR [Suspect]
     Indication: LIPIDS ABNORMAL
     Route: 048
     Dates: start: 20070705, end: 20080616
  2. ASPIRIN [Suspect]
     Route: 048
     Dates: start: 20050616, end: 20080611
  3. GLIMICRON [Concomitant]
     Indication: DIABETES MELLITUS
     Route: 048
     Dates: start: 20050420, end: 20080613
  4. MICARDIS [Concomitant]
     Indication: HYPERTENSION
     Route: 048
     Dates: start: 20050518
  5. ACTOS [Concomitant]
     Indication: DIABETES MELLITUS
     Route: 048
     Dates: start: 20071105, end: 20080611

REACTIONS (1)
  - DIFFUSE ALVEOLAR DAMAGE [None]
